FAERS Safety Report 10724499 (Version 1)
Quarter: 2015Q1

REPORT INFORMATION
  Report Type: Spontaneous
  Country: FR (occurrence: FR)
  Receive Date: 20150120
  Receipt Date: 20150120
  Transmission Date: 20150721
  Serious: Yes (Hospitalization)
  Sender: FDA-Public Use
  Company Number: FR-ASTRAZENECA-2015SE01785

PATIENT
  Age: 28752 Day
  Sex: Male

DRUGS (8)
  1. CRESTOR [Concomitant]
     Active Substance: ROSUVASTATIN CALCIUM
  2. ZOPICLONE [Concomitant]
     Active Substance: ZOPICLONE
  3. ASPIRINE [Concomitant]
     Active Substance: ASPIRIN
  4. TAMSULOSINE [Concomitant]
     Active Substance: TAMSULOSIN HYDROCHLORIDE
  5. NEBIVOLOL [Concomitant]
     Active Substance: NEBIVOLOL
  6. INEXIUM [Suspect]
     Active Substance: ESOMEPRAZOLE
     Route: 048
     Dates: end: 20141106
  7. PERINDOPRIL [Concomitant]
     Active Substance: PERINDOPRIL
  8. FLUDEX [Suspect]
     Active Substance: INDAPAMIDE
     Indication: HYPERTENSION
     Route: 048
     Dates: end: 20141106

REACTIONS (2)
  - Hyponatraemia [Recovered/Resolved]
  - Urinary retention [Unknown]

NARRATIVE: CASE EVENT DATE: 20141104
